FAERS Safety Report 4669764-6 (Version None)
Quarter: 2005Q2

REPORT INFORMATION
  Report Type: 
  Country: None (occurrence: None)
  Receive Date: 20050520
  Receipt Date: 20050504
  Transmission Date: 20051028
  Serious: Yes (Other)
  Sender: FDA-Public Use
  Company Number: CAO05000617

PATIENT
  Sex: Female

DRUGS (1)
  1. METAMUCIL SUGAR-FREE SMOOTH TEXTURE, ORANGE FLAVOR (PSYLLIUM HYDROPHIL [Suspect]
     Dosage: ORAL
     Route: 048

REACTIONS (1)
  - PHARYNGEAL OEDEMA [None]
